FAERS Safety Report 18080846 (Version 1)
Quarter: 2020Q3

REPORT INFORMATION
  Report Type: Spontaneous
  Country: US (occurrence: US)
  Receive Date: 20200728
  Receipt Date: 20200728
  Transmission Date: 20201103
  Serious: No
  Sender: FDA-Public Use
  Company Number: NVSC2020US207994

PATIENT
  Sex: Female
  Weight: 71.21 kg

DRUGS (7)
  1. FOLIC ACID. [Concomitant]
     Active Substance: FOLIC ACID
     Indication: PREGNANCY
     Dosage: 4 MG
     Route: 048
     Dates: start: 20200715
  2. GESTAGENO [Concomitant]
     Indication: IN VITRO FERTILISATION
     Dosage: 200 MG
     Route: 048
     Dates: start: 20200715
  3. GILENYA [Suspect]
     Active Substance: FINGOLIMOD HYDROCHLORIDE
     Indication: MULTIPLE SCLEROSIS
     Dosage: 0.5 MG
     Route: 048
     Dates: start: 2010, end: 20200625
  4. CRANBERRY. [Concomitant]
     Active Substance: CRANBERRY
     Indication: URINARY TRACT INFECTION
     Dosage: 500 MG CRANBERRY, 50 MG VITAMIN C
     Route: 048
     Dates: start: 20200718
  5. MULTIVITAMINS [Concomitant]
     Active Substance: VITAMINS
     Indication: PREGNANCY
     Dosage: UNK
     Route: 048
     Dates: start: 20200708
  6. AUGMENTIN [Concomitant]
     Active Substance: AMOXICILLIN\CLAVULANATE POTASSIUM
     Indication: URINARY TRACT INFECTION
     Dosage: 500 MG
     Route: 048
  7. CLAVULANIC ACID [Concomitant]
     Active Substance: CLAVULANIC ACID
     Indication: URINARY TRACT INFECTION
     Dosage: 125 MG
     Route: 048
     Dates: start: 20200718

REACTIONS (2)
  - Thyroid hormones decreased [Unknown]
  - Maternal exposure during pregnancy [Unknown]
